FAERS Safety Report 20483042 (Version 1)
Quarter: 2022Q1

REPORT INFORMATION
  Report Type: Spontaneous
  Country: US (occurrence: US)
  Receive Date: 20220217
  Receipt Date: 20220217
  Transmission Date: 20220423
  Serious: Yes (Other)
  Sender: FDA-Public Use
  Company Number: US-ROCHE-3024475

PATIENT
  Sex: Male
  Weight: 49.2 kg

DRUGS (8)
  1. NUTROPIN AQ [Suspect]
     Active Substance: SOMATROPIN
     Indication: Silver-Russell syndrome
     Route: 058
  2. NUTROPIN AQ [Suspect]
     Active Substance: SOMATROPIN
     Indication: Short stature
  3. LUPRON [Concomitant]
     Active Substance: LEUPROLIDE ACETATE
  4. ADDERALL [Concomitant]
     Active Substance: AMPHETAMINE ASPARTATE\AMPHETAMINE SULFATE\DEXTROAMPHETAMINE SACCHARATE\DEXTROAMPHETAMINE SULFATE
  5. ZYRTEC (UNITED STATES) [Concomitant]
  6. FLOVENT [Concomitant]
     Active Substance: FLUTICASONE PROPIONATE
  7. METFORMIN [Concomitant]
     Active Substance: METFORMIN HYDROCHLORIDE
  8. LETROZOLE [Concomitant]
     Active Substance: LETROZOLE

REACTIONS (3)
  - Intraocular pressure increased [Unknown]
  - Papilloedema [Unknown]
  - Off label use [Unknown]
